FAERS Safety Report 7811013-1 (Version None)
Quarter: 2011Q4

REPORT INFORMATION
  Report Type: 
  Country: None (occurrence: None)
  Receive Date: 20111013
  Receipt Date: 20111005
  Transmission Date: 20120403
  Serious: Yes (Hospitalization, Other)
  Sender: FDA-Public Use
  Company Number: JP-CEPHALON-2011004724

PATIENT
  Age: 86 Year
  Sex: Male

DRUGS (11)
  1. VALSARTAN [Concomitant]
     Dates: start: 20110526
  2. BENDAMUSTINE HCL [Suspect]
     Indication: MANTLE CELL LYMPHOMA RECURRENT
     Route: 042
     Dates: start: 20110526
  3. RASBURICASE [Concomitant]
     Dates: start: 20110526, end: 20110527
  4. ALLOPURINOL [Concomitant]
     Dates: start: 20110526
  5. NICERGOLINE [Concomitant]
     Dates: start: 20110526
  6. SULFAMETHIZOLE TAB [Concomitant]
     Dates: start: 20110526
  7. FLUCONAZOLE [Concomitant]
     Dates: start: 20110526
  8. ASPIRIN [Concomitant]
     Dates: start: 20110526
  9. LEVOFLOXACIN [Concomitant]
     Dates: start: 20110526
  10. FAMOTIDINE [Concomitant]
     Dates: start: 20110526
  11. MEROPENEM [Concomitant]
     Dates: start: 20110811, end: 20110819

REACTIONS (3)
  - NEUTROPHIL COUNT DECREASED [None]
  - PYREXIA [None]
  - CYTOMEGALOVIRUS INFECTION [None]
